FAERS Safety Report 6490629-1 (Version None)
Quarter: 2009Q4

REPORT INFORMATION
  Report Type: 
  Country: None (occurrence: None)
  Receive Date: 20091211
  Receipt Date: 20091204
  Transmission Date: 20100525
  Serious: Yes (Other)
  Sender: FDA-Public Use
  Company Number: A0833619A

PATIENT
  Age: 39 Year
  Sex: Female

DRUGS (2)
  1. WELLBUTRIN [Suspect]
     Indication: DEPRESSION
     Route: 065
     Dates: start: 20040101, end: 20040101
  2. NO CONCURRENT MEDICATION [Concomitant]

REACTIONS (4)
  - ABASIA [None]
  - APHASIA [None]
  - FEELING ABNORMAL [None]
  - PERFORMANCE STATUS DECREASED [None]
